FAERS Safety Report 15472060 (Version 2)
Quarter: 2019Q4

REPORT INFORMATION
  Report Type: Report from Study
  Country: NL (occurrence: NL)
  Receive Date: 20181008
  Receipt Date: 20191015
  Transmission Date: 20200122
  Serious: Yes (Hospitalization)
  Sender: FDA-Public Use
  Company Number: NL-ROCHE-2194896

PATIENT

DRUGS (5)
  1. IRINOTECAN [Suspect]
     Active Substance: IRINOTECAN
     Indication: COLORECTAL CANCER
     Dosage: ON 14/NOV/2018, PATIENT RECEIVED MOST RECENT DOSE
     Route: 065
     Dates: start: 20180829, end: 20180829
  2. LEUCOVORIN [FOLINIC ACID] [Suspect]
     Active Substance: LEUCOVORIN
     Indication: COLORECTAL CANCER
     Dosage: ON 14/NOV/2018, PATIENT RECEIVED MOST RECENT DOSE
     Route: 065
     Dates: start: 20180829, end: 20180829
  3. BEVACIZUMAB. [Suspect]
     Active Substance: BEVACIZUMAB
     Indication: COLORECTAL CANCER
     Dosage: ON 10/OCT/2018, PATIENT RECEIVED THE MOST RECENT DOSE OF BEVACIZUMAB.
     Route: 065
     Dates: start: 20180829, end: 20180829
  4. 5-FLUOROURACIL [FLUOROURACIL] [Suspect]
     Active Substance: FLUOROURACIL
     Indication: COLORECTAL CANCER
     Dosage: ON 14/NOV/2018, PATIENT RECEIVED MOST RECENT DOSE
     Route: 065
     Dates: start: 20180829, end: 20180831
  5. OXALIPLATIN. [Suspect]
     Active Substance: OXALIPLATIN
     Indication: COLORECTAL CANCER
     Dosage: ON 14/NOV/2018, PATIENT RECEIVED MOST RECENT DOSE
     Route: 065
     Dates: start: 20180829, end: 20180829

REACTIONS (1)
  - Pyrexia [Recovered/Resolved]

NARRATIVE: CASE EVENT DATE: 20180901
